FAERS Safety Report 5733839-0 (Version None)
Quarter: 2008Q2

REPORT INFORMATION
  Report Type: 
  Country: None (occurrence: None)
  Receive Date: 20080509
  Receipt Date: 20080429
  Transmission Date: 20081010
  Serious: Yes (Hospitalization)
  Sender: FDA-Public Use
  Company Number: US-PFIZER INC-2008036463

PATIENT
  Sex: Male

DRUGS (13)
  1. SU-011,248 [Suspect]
     Indication: PANCREATIC CARCINOMA
     Route: 048
  2. GEMCITABINE [Suspect]
     Indication: PANCREATIC CARCINOMA
     Route: 042
  3. AVAPRO [Concomitant]
     Indication: HYPERTENSION
     Route: 048
  4. MIRALAX [Concomitant]
     Indication: CONSTIPATION
     Route: 048
  5. OXYCODONE HCL [Concomitant]
     Indication: ABDOMINAL PAIN
     Route: 048
  6. OXYCONTIN [Concomitant]
     Indication: ABDOMINAL PAIN
     Route: 048
  7. REGLAN [Concomitant]
     Indication: HICCUPS
     Route: 048
  8. RITALIN [Concomitant]
     Indication: ANOREXIA
     Route: 048
  9. TOPROL-XL [Concomitant]
     Indication: HYPERTENSION
     Route: 048
  10. TYLENOL EXTRA-STRENGTH [Concomitant]
     Indication: ABDOMINAL PAIN
     Route: 048
  11. ZOFRAN [Concomitant]
     Indication: PROPHYLAXIS OF NAUSEA AND VOMITING
     Route: 048
  12. DEXAMETHASONE [Concomitant]
     Indication: PROPHYLAXIS
     Route: 048
     Dates: start: 20080421, end: 20080421
  13. AFRIN [Concomitant]
     Indication: EPISTAXIS
     Route: 045
     Dates: start: 20080427, end: 20080427

REACTIONS (1)
  - CEREBROVASCULAR ACCIDENT [None]
